FAERS Safety Report 19111785 (Version 2)
Quarter: 2021Q3

REPORT INFORMATION
  Report Type: Other
  Country: US (occurrence: US)
  Receive Date: 20210408
  Receipt Date: 20210812
  Transmission Date: 20211014
  Serious: Yes (Death)
  Sender: FDA-Public Use
  Company Number: US-ROCHE-2806211

PATIENT
  Age: 69 Year
  Sex: Female

DRUGS (2)
  1. OCREVUS [Suspect]
     Active Substance: OCRELIZUMAB
     Indication: MULTIPLE SCLEROSIS
     Dosage: 600 INFUSE 600 MG OVER 2.5 HRS EVERY 6 MONTHS?DATE OF TREATMENT : 05/SEP/2019, 11/MAY/2020, 17/NOV/2
     Route: 042
     Dates: start: 20190822, end: 20201107
  2. OCREVUS [Suspect]
     Active Substance: OCRELIZUMAB
     Dosage: 300 MG INFUSE 300 MG OVER 2.5 HRS, THEN 2ND LATER INFUSE 300 MG OVER 215 HRS
     Route: 042

REACTIONS (1)
  - Death [Fatal]

NARRATIVE: CASE EVENT DATE: 20201128
